FAERS Safety Report 17729797 (Version 1)
Quarter: 2020Q2

REPORT INFORMATION
  Report Type: Spontaneous
  Country: CN (occurrence: CN)
  Receive Date: 20200430
  Receipt Date: 20200430
  Transmission Date: 20200714
  Serious: Yes (Death, Other)
  Sender: FDA-Public Use
  Company Number: NVSC2020CN116619

PATIENT
  Age: 3 Month
  Sex: Female

DRUGS (5)
  1. BACTRIM [Concomitant]
     Active Substance: SULFAMETHOXAZOLE\TRIMETHOPRIM
     Indication: PROPHYLAXIS
     Dosage: UNK
     Route: 065
  2. PREDNISONE. [Suspect]
     Active Substance: PREDNISONE
     Indication: AUTOINFLAMMATORY DISEASE
     Dosage: UNK
     Route: 048
  3. PREDNISONE. [Suspect]
     Active Substance: PREDNISONE
     Dosage: GRADUAL DIMINUTION OF DOSE
     Route: 048
  4. TOFACITINIB [Suspect]
     Active Substance: TOFACITINIB
     Indication: AUTOINFLAMMATORY DISEASE
     Dosage: 2.5 MG, BID
     Route: 065
  5. METHYLPREDNISOLONE. [Suspect]
     Active Substance: METHYLPREDNISOLONE
     Indication: AUTOINFLAMMATORY DISEASE
     Dosage: 2 MG/KG, QD
     Route: 042

REACTIONS (5)
  - Condition aggravated [Fatal]
  - Acute respiratory failure [Fatal]
  - Drug ineffective [Unknown]
  - Autoinflammatory disease [Fatal]
  - Product use in unapproved indication [Unknown]
